FAERS Safety Report 15587623 (Version 4)
Quarter: 2018Q4

REPORT INFORMATION
  Report Type: Spontaneous
  Country: US (occurrence: US)
  Receive Date: 20181105
  Receipt Date: 20181119
  Transmission Date: 20190205
  Serious: Yes (Death, Life-Threatening, Other)
  Sender: FDA-Public Use
  Company Number: PHHY2018US145765

PATIENT
  Age: 48 Year
  Sex: Male

DRUGS (12)
  1. PREDNISONE. [Suspect]
     Active Substance: PREDNISONE
     Indication: NATURAL KILLER-CELL LYMPHOBLASTIC LYMPHOMA
  2. ETOPOSIDE. [Suspect]
     Active Substance: ETOPOSIDE
     Indication: LYMPHOMA
     Dosage: UNK
     Route: 065
  3. PREDNISONE. [Suspect]
     Active Substance: PREDNISONE
     Indication: LYMPHOMA
     Route: 065
  4. DEXAMETHASONE. [Suspect]
     Active Substance: DEXAMETHASONE
     Indication: HAEMOPHAGOCYTIC LYMPHOHISTIOCYTOSIS
     Route: 065
  5. CYCLOPHOSPHAMIDE. [Suspect]
     Active Substance: CYCLOPHOSPHAMIDE
     Indication: NATURAL KILLER-CELL LYMPHOBLASTIC LYMPHOMA
  6. HYDROXYDAUNORUBICIN [Suspect]
     Active Substance: DOXORUBICIN
     Indication: LYMPHOMA
     Dosage: UNK
     Route: 065
  7. ONCOVIN [Suspect]
     Active Substance: VINCRISTINE SULFATE
     Indication: LYMPHOMA
     Route: 065
  8. ETOPOSIDE. [Suspect]
     Active Substance: ETOPOSIDE
     Indication: NATURAL KILLER-CELL LYMPHOBLASTIC LYMPHOMA
  9. ETOPOSIDE. [Suspect]
     Active Substance: ETOPOSIDE
     Indication: HAEMOPHAGOCYTIC LYMPHOHISTIOCYTOSIS
  10. ONCOVIN [Suspect]
     Active Substance: VINCRISTINE SULFATE
     Indication: NATURAL KILLER-CELL LYMPHOBLASTIC LYMPHOMA
  11. CYCLOPHOSPHAMIDE. [Suspect]
     Active Substance: CYCLOPHOSPHAMIDE
     Indication: LYMPHOMA
     Route: 065
  12. HYDROXYDAUNORUBICIN [Suspect]
     Active Substance: DOXORUBICIN
     Indication: NATURAL KILLER-CELL LYMPHOBLASTIC LYMPHOMA

REACTIONS (9)
  - Haemophagocytic lymphohistiocytosis [Fatal]
  - Malignant neoplasm progression [Fatal]
  - Natural killer-cell lymphoblastic lymphoma [Fatal]
  - Acute kidney injury [Fatal]
  - Cytopenia [Fatal]
  - Sepsis [Fatal]
  - Respiratory failure [Fatal]
  - Drug ineffective [Fatal]
  - Product use in unapproved indication [Unknown]
